FAERS Safety Report 9921799 (Version 1)
Quarter: 2014Q1

REPORT INFORMATION
  Report Type: Spontaneous
  Country: US (occurrence: None)
  Receive Date: 20140221
  Receipt Date: 20140221
  Transmission Date: 20141002
  Serious: Yes (Hospitalization)
  Sender: FDA-Public Use
  Company Number: None

PATIENT
  Age: 84 Year
  Sex: Male
  Weight: 79.38 kg

DRUGS (2)
  1. PROLIA (DENOSUMAB) [Suspect]
     Indication: OSTEOPOROSIS
     Dosage: 1 MG?INJECTION (TO BE REPEATED 6 MONTHS)?
     Dates: start: 201312
  2. PROLIA (DENOSUMAB) [Suspect]
     Indication: OSTEOPENIA
     Dosage: 1 MG?INJECTION (TO BE REPEATED 6 MONTHS)?
     Dates: start: 201312

REACTIONS (12)
  - Headache [None]
  - Dizziness [None]
  - Chest pain [None]
  - Hypoaesthesia [None]
  - Hypoaesthesia [None]
  - Muscle spasms [None]
  - Muscle spasms [None]
  - Muscle spasms [None]
  - Gastrointestinal motility disorder [None]
  - Renal impairment [None]
  - Refusal of treatment by patient [None]
  - Nervous system disorder [None]
